FAERS Safety Report 7421715-7 (Version None)
Quarter: 2011Q2

REPORT INFORMATION
  Report Type: 
  Country: None (occurrence: None)
  Receive Date: 20110418
  Receipt Date: 20101207
  Transmission Date: 20111010
  Serious: Yes (Hospitalization, Other)
  Sender: FDA-Public Use
  Company Number: US-BAYER-201038357NA

PATIENT
  Age: 39 Year
  Sex: Female
  Weight: 172.34 kg

DRUGS (17)
  1. SYNTHROID [Concomitant]
     Dosage: 200 MG, UNK
  2. PRILOSEC [Concomitant]
     Dosage: 20 MG, UNK
  3. DARVOCET-N 50 [Concomitant]
     Dosage: 100 MG, UNK
  4. YAZ [Suspect]
     Indication: ACNE
  5. ACTOS [Concomitant]
  6. GLUCOPHAGE [Concomitant]
     Dosage: 1000 MG, UNK
  7. LISINOPRIL AND HYDROCHLOROTHIAZIDE [Concomitant]
     Dosage: UNK
     Dates: start: 20030508
  8. ZOCOR [Concomitant]
     Dosage: UNK
     Dates: start: 20090401
  9. ALBUTEROL INHALER [Concomitant]
  10. YASMIN [Suspect]
     Indication: ACNE
     Dosage: UNK
     Dates: start: 20030224, end: 20040101
  11. OCELLA [Suspect]
     Indication: ACNE
  12. ZOCOR [Concomitant]
     Dosage: UNK
     Dates: start: 20030928
  13. LISINOPRIL AND HYDROCHLOROTHIAZIDE [Concomitant]
     Dosage: UNK
     Dates: start: 20030603
  14. FLOVENT [Concomitant]
     Dosage: 440 MG, UNK
  15. MOBIC [Concomitant]
     Dosage: UNK
     Dates: start: 20030808
  16. SEREVENT [Concomitant]
  17. GLUCOTROL XL [Concomitant]
     Dosage: 10 MG, UNK

REACTIONS (6)
  - PANIC ATTACK [None]
  - CARDIAC DISORDER [None]
  - HEART RATE INCREASED [None]
  - PULMONARY EMBOLISM [None]
  - INJURY [None]
  - THROMBOSIS [None]
